FAERS Safety Report 18609389 (Version 2)
Quarter: 2021Q1

REPORT INFORMATION
  Report Type: Spontaneous
  Country: SE (occurrence: SE)
  Receive Date: 20201214
  Receipt Date: 20210304
  Transmission Date: 20210419
  Serious: Yes (Death)
  Sender: FDA-Public Use
  Company Number: SE-ROCHE-2728097

PATIENT
  Age: 65 Year
  Sex: Male

DRUGS (18)
  1. RAMIPRIL. [Concomitant]
     Active Substance: RAMIPRIL
     Dates: start: 20170908
  2. OXALIPLATIN. [Suspect]
     Active Substance: OXALIPLATIN
     Indication: ADJUVANT THERAPY
     Route: 042
     Dates: start: 20200908, end: 20200929
  3. BRICANYL [Concomitant]
     Active Substance: TERBUTALINE SULFATE
     Dosage: 1 INHALATION VID BEHOV
     Dates: start: 20190206
  4. BETNOVAT [Concomitant]
     Active Substance: BETAMETHASONE
     Dosage: 1 MG/ML
     Dates: start: 20171129
  5. CAPECITABINE. [Suspect]
     Active Substance: CAPECITABINE
     Indication: ADJUVANT THERAPY
     Route: 048
     Dates: start: 20200908, end: 20201010
  6. ATORVASTATIN [Concomitant]
     Active Substance: ATORVASTATIN
     Dates: start: 20180721
  7. ALVEDON [Concomitant]
     Active Substance: ACETAMINOPHEN
     Dosage: 2 TABLETTER VID BEHOV 3GANGER DAGLIGEN
     Dates: start: 20200812
  8. HYDROCHLOROTHIAZIDE. [Concomitant]
     Active Substance: HYDROCHLOROTHIAZIDE
     Dates: start: 20170908
  9. MINIDERM (SWEDEN) [Concomitant]
     Dates: start: 20170907
  10. JANUVIA [Concomitant]
     Active Substance: SITAGLIPTIN PHOSPHATE
     Dates: start: 20170908
  11. METFORMIN [Concomitant]
     Active Substance: METFORMIN HYDROCHLORIDE
     Dates: start: 20170907
  12. BUFOMIX EASYHALER [Concomitant]
     Active Substance: BUDESONIDE\FORMOTEROL FUMARATE
     Dosage: 2 INHALATIONER 2 GANGER DAGLIGEN
     Dates: start: 20190206
  13. BETNOVAT [Concomitant]
     Active Substance: BETAMETHASONE
     Dates: start: 20170929
  14. TROMBYL [Concomitant]
     Active Substance: ASPIRIN
     Dates: start: 20170908
  15. LORATADINE. [Concomitant]
     Active Substance: LORATADINE
     Dosage: 1 TABLETT VID BEHOV
     Dates: start: 20170907
  16. MINDIAB [Concomitant]
     Active Substance: GLIPIZIDE
     Dates: start: 20170908
  17. OMEPRAZOLE. [Concomitant]
     Active Substance: OMEPRAZOLE
     Dates: start: 20170908
  18. INOLAXOL [Concomitant]
     Active Substance: HERBALS\KARAYA GUM
     Dates: start: 20200924

REACTIONS (6)
  - Septic shock [Fatal]
  - Gastrointestinal oedema [Fatal]
  - Thrombocytopenia [Fatal]
  - Febrile neutropenia [Fatal]
  - Small intestinal haemorrhage [Fatal]
  - Gastrointestinal mucosal necrosis [Fatal]

NARRATIVE: CASE EVENT DATE: 202010
